FAERS Safety Report 23959040 (Version 3)
Quarter: 2024Q2

REPORT INFORMATION
  Report Type: Report from Study
  Country: DE (occurrence: DE)
  Receive Date: 20240611
  Receipt Date: 20240619
  Transmission Date: 20240715
  Serious: Yes (Death, Hospitalization, Other)
  Sender: FDA-Public Use
  Company Number: DE-VELOXIS PHARMACEUTICALS, INC.-2024-VEL-00323

PATIENT
  Age: 53 Year
  Sex: Female
  Weight: 44 kg

DRUGS (4)
  1. ENVARSUS XR [Suspect]
     Active Substance: TACROLIMUS
     Indication: Liver transplant
     Dosage: 1.5 MILLIGRAM QD (0.75 MG STRENGTH)
     Route: 048
     Dates: start: 20230815
  2. ASPIRIN [Concomitant]
     Active Substance: ASPIRIN
     Indication: Hepatic artery thrombosis
     Dosage: 100 MILLIGRAM, QD
  3. UDC [Concomitant]
     Indication: Bile duct stenosis
     Dosage: 250 MILLIGRAM, QD
  4. PANTOPRAZOLE [Concomitant]
     Active Substance: PANTOPRAZOLE
     Indication: Prophylaxis against gastrointestinal ulcer
     Dosage: 40 MILLIGRAM, EVERY SECOND DAY

REACTIONS (6)
  - Portal vein thrombosis [Fatal]
  - Oesophageal carcinoma [Fatal]
  - Tracheal cancer [Fatal]
  - Tracheal mass [Not Recovered/Not Resolved]
  - Stridor [Not Recovered/Not Resolved]
  - Dyspnoea [Not Recovered/Not Resolved]

NARRATIVE: CASE EVENT DATE: 20240522
